FAERS Safety Report 9500587 (Version 1)
Quarter: 2013Q3

REPORT INFORMATION
  Report Type: Spontaneous
  Country: US (occurrence: None)
  Receive Date: 20130904
  Receipt Date: 20130904
  Transmission Date: 20140515
  Serious: Yes (Disabling)
  Sender: FDA-Public Use
  Company Number: None

PATIENT
  Age: 75 Year
  Sex: Male
  Weight: 117.94 kg

DRUGS (8)
  1. METOCLOPRAMIDE [Suspect]
     Indication: DYSPEPSIA
     Route: 048
     Dates: start: 20130425, end: 20130518
  2. ASPIRIN [Concomitant]
  3. LISINOPRIL [Concomitant]
  4. FUROSEMIDE [Concomitant]
  5. KCL [Concomitant]
  6. WARFARIN [Concomitant]
  7. FINASTERIDE [Concomitant]
  8. METOPROLOL [Concomitant]

REACTIONS (1)
  - Atrial fibrillation [None]
